FAERS Safety Report 25364730 (Version 1)
Quarter: 2025Q2

REPORT INFORMATION
  Report Type: Spontaneous
  Country: US (occurrence: US)
  Receive Date: 20250527
  Receipt Date: 20250527
  Transmission Date: 20250716
  Serious: Yes (Other)
  Sender: CALLIDITAS THERAPEUTICS AB
  Company Number: US-Calliditas-2025CAL01395

PATIENT
  Age: 33 Year
  Sex: Female

DRUGS (7)
  1. TARPEYO [Suspect]
     Active Substance: BUDESONIDE
     Indication: IgA nephropathy
     Route: 048
     Dates: start: 20241025
  2. CLOBETASOL [Concomitant]
     Active Substance: CLOBETASOL
  3. DAPSONE [Concomitant]
     Active Substance: DAPSONE
  4. LUNESTA [Concomitant]
     Active Substance: ESZOPICLONE
  5. LUVOX [Concomitant]
     Active Substance: FLUVOXAMINE MALEATE
  6. KENALOG [Concomitant]
     Active Substance: TRIAMCINOLONE ACETONIDE
  7. VIORELE [Concomitant]
     Active Substance: DESOGESTREL\ETHINYL ESTRADIOL

REACTIONS (2)
  - Adrenal insufficiency [Unknown]
  - Rash [Unknown]

NARRATIVE: CASE EVENT DATE: 20250518
